FAERS Safety Report 14209663 (Version 1)
Quarter: 2017Q4

REPORT INFORMATION
  Report Type: Spontaneous
  Country: US (occurrence: US)
  Receive Date: 20171121
  Receipt Date: 20171121
  Transmission Date: 20180321
  Serious: No
  Sender: FDA-Public Use
  Company Number: US-PFIZER INC-2017494710

PATIENT
  Age: 53 Year
  Sex: Female
  Weight: 125 kg

DRUGS (8)
  1. DEXILANT [Concomitant]
     Active Substance: DEXLANSOPRAZOLE
     Dosage: 60 MG, 1X/DAY
  2. LOSARTAN AND HYDROCHLOROTHIAZIDE [Concomitant]
     Active Substance: HYDROCHLOROTHIAZIDE\LOSARTAN POTASSIUM
     Indication: BLOOD PRESSURE ABNORMAL
     Dosage: UNK UNK, 1X/DAY, 100/25MG
     Route: 048
  3. LYRICA [Suspect]
     Active Substance: PREGABALIN
     Indication: NERVE ROOT INJURY LUMBAR
     Dosage: 100 MG, 3X/DAY
     Dates: start: 20171019
  4. CHLORZOXAZONE. [Suspect]
     Active Substance: CHLORZOXAZONE
     Indication: NERVE ROOT INJURY LUMBAR
     Dosage: 500 MG, 3X/DAY
     Route: 048
  5. LYRICA [Suspect]
     Active Substance: PREGABALIN
     Dosage: UNK
  6. TRAMADOL. [Suspect]
     Active Substance: TRAMADOL
     Indication: NERVE ROOT INJURY LUMBAR
     Dosage: 50 MG, AS NEEDED, ONE TABLET EVERY 6 HOURS AS NEEDED
  7. HUMIRA [Concomitant]
     Active Substance: ADALIMUMAB
     Indication: AUTOIMMUNE DISORDER
     Dosage: UNK (40MG/0.8ML, AUTOINJECT EVERY 2 WEEKS)
  8. METFORMIN [Concomitant]
     Active Substance: METFORMIN HYDROCHLORIDE
     Indication: DIABETES MELLITUS
     Dosage: 1000 MG, 2X/DAY

REACTIONS (5)
  - Neuropathy peripheral [Not Recovered/Not Resolved]
  - Dry mouth [Not Recovered/Not Resolved]
  - Drug effect incomplete [Unknown]
  - Condition aggravated [Not Recovered/Not Resolved]
  - Dry skin [Not Recovered/Not Resolved]
